FAERS Safety Report 5857396-3 (Version None)
Quarter: 2008Q3

REPORT INFORMATION
  Report Type: 
  Country: None (occurrence: None)
  Receive Date: 20080826
  Receipt Date: 20080812
  Transmission Date: 20090109
  Serious: Yes (Hospitalization)
  Sender: FDA-Public Use
  Company Number: JP-BRISTOL-MYERS SQUIBB COMPANY-14312540

PATIENT
  Age: 40 Year
  Sex: Male

DRUGS (5)
  1. EFAVIRENZ [Suspect]
     Indication: HIV INFECTION
     Dosage: STARTED ON: 14JUN04 INTERRUPTED ON: 21DEC04 RESTARTED ON: 09DEC05 WITHDRAWN ON: 11JUL07
     Route: 048
     Dates: start: 20051209, end: 20070711
  2. REYATAZ [Suspect]
     Indication: HIV INFECTION
     Dosage: STARTED: 21DEC04 INTERRUPTED: 21JAN05 RESTARTED: 22JUN05 WITHDRAWN: 10MAY07
     Route: 048
     Dates: start: 20050622, end: 20070510
  3. EPIVIR [Suspect]
     Indication: HIV INFECTION
     Dosage: STARTED: 22JUL05 (150MG BID) INTERRUPTED: 02AUG05 RESTARTED:03AUG05(300MG OD) WITHDRAWN:13DEC07
     Route: 048
     Dates: start: 20050722, end: 20071213
  4. NORVIR [Suspect]
     Indication: HIV INFECTION
     Dosage: FORMULATION: CAPS STARTED: 21DEC04 INTERRUPTED: 21JAN05 RESTARTED: 22JUN05 WITHDRAWN: 10MAY07
     Route: 048
     Dates: start: 20050622, end: 20070510
  5. VIREAD [Suspect]
     Indication: HIV INFECTION
     Route: 048
     Dates: start: 20050802, end: 20071213

REACTIONS (1)
  - DIABETES MELLITUS [None]
